FAERS Safety Report 19448347 (Version 1)
Quarter: 2021Q2

REPORT INFORMATION
  Report Type: Spontaneous
  Country: NL (occurrence: NL)
  Receive Date: 20210622
  Receipt Date: 20210622
  Transmission Date: 20210717
  Serious: Yes (Hospitalization, Disabling)
  Sender: FDA-Public Use
  Company Number: NL-ACCORD-228949

PATIENT
  Age: 74 Year
  Sex: Female
  Weight: 66 kg

DRUGS (2)
  1. CISPLATIN. [Suspect]
     Active Substance: CISPLATIN
     Indication: HYPERTHERMIC CHEMOTHERAPY
     Dosage: 100 MG/M2 WITH MAXIMUM 200 MG
     Dates: start: 20201127
  2. SODIUM THIOSULFATE [Concomitant]
     Active Substance: SODIUM THIOSULFATE
     Dosage: 200 ML OF HYPERTONIC THIOSULFATE SOLUTION (9 GRAMS/M2)ADMINISTERED IN 20 MINUTES.

REACTIONS (3)
  - Poor peripheral circulation [Not Recovered/Not Resolved]
  - Off label use [Unknown]
  - Skin discolouration [Not Recovered/Not Resolved]

NARRATIVE: CASE EVENT DATE: 20201127
